FAERS Safety Report 20182914 (Version 1)
Quarter: 2021Q4

REPORT INFORMATION
  Report Type: Spontaneous
  Country: JP (occurrence: JP)
  Receive Date: 20211214
  Receipt Date: 20211214
  Transmission Date: 20220303
  Serious: Yes (Death, Other)
  Sender: FDA-Public Use
  Company Number: JP-PFIZER INC-202101314629

PATIENT
  Age: 83 Year
  Sex: Female
  Weight: 31.2 kg

DRUGS (5)
  1. ZYVOX [Suspect]
     Active Substance: LINEZOLID
     Indication: Soft tissue infection
     Dosage: 600 MG, 2X/DAY
     Dates: start: 20211001, end: 20211012
  2. ZYVOX [Suspect]
     Active Substance: LINEZOLID
     Indication: Skin infection
     Dosage: 600 MG, 1X/DAY
     Dates: start: 20211027, end: 20211102
  3. ZYVOX [Suspect]
     Active Substance: LINEZOLID
     Dosage: 600 MG, 1X/DAY
     Dates: start: 20211110
  4. LEVETIRACETAM [Concomitant]
     Active Substance: LEVETIRACETAM
     Indication: Epilepsy
     Dosage: 250 MG, 2X/DAY
     Dates: start: 20210925
  5. EDOXABAN TOSYLATE [Concomitant]
     Active Substance: EDOXABAN TOSYLATE
     Indication: Thrombosis
     Dosage: UNK
     Dates: start: 20211020, end: 20211109

REACTIONS (3)
  - Death [Fatal]
  - Platelet count decreased [Recovered/Resolved]
  - Off label use [Unknown]

NARRATIVE: CASE EVENT DATE: 20211012
